FAERS Safety Report 18496833 (Version 8)
Quarter: 2021Q3

REPORT INFORMATION
  Report Type: Report from Study
  Country: US (occurrence: US)
  Receive Date: 20201112
  Receipt Date: 20210825
  Transmission Date: 20211014
  Serious: No
  Sender: FDA-Public Use
  Company Number: NVSC2020US301015

PATIENT
  Sex: Female

DRUGS (2)
  1. COSENTYX [Suspect]
     Active Substance: SECUKINUMAB
     Indication: PSORIASIS
     Dosage: UNK
     Route: 065
  2. COSENTYX [Suspect]
     Active Substance: SECUKINUMAB
     Dosage: 300 MG, QMO
     Route: 065
     Dates: start: 20201124

REACTIONS (8)
  - Peripheral swelling [Unknown]
  - Diarrhoea [Unknown]
  - Pain [Unknown]
  - Product dose omission issue [Unknown]
  - Fatigue [Unknown]
  - Immune system disorder [Unknown]
  - Somnolence [Unknown]
  - Balance disorder [Unknown]
